FAERS Safety Report 23559484 (Version 1)
Quarter: 2024Q1

REPORT INFORMATION
  Report Type: Spontaneous
  Country: FR (occurrence: FR)
  Receive Date: 20240223
  Receipt Date: 20240223
  Transmission Date: 20240409
  Serious: Yes (Hospitalization)
  Sender: FDA-Public Use
  Company Number: FR-BoehringerIngelheim-2024-BI-010267

PATIENT
  Sex: Male

DRUGS (1)
  1. SYNJARDY [Suspect]
     Active Substance: EMPAGLIFLOZIN\METFORMIN HYDROCHLORIDE
     Indication: Diabetes mellitus
     Dosage: 5MG/1000MG
     Route: 048

REACTIONS (2)
  - Cholecystitis [Recovered/Resolved]
  - Ketoacidosis [Recovered/Resolved]
